FAERS Safety Report 18005498 (Version 3)
Quarter: 2020Q3

REPORT INFORMATION
  Report Type: Report from Study
  Country: US (occurrence: US)
  Receive Date: 20200709
  Receipt Date: 20200811
  Transmission Date: 20201103
  Serious: Yes (Death, Hospitalization)
  Sender: FDA-Public Use
  Company Number: US-ACTELION-A-NJ2020-203884

PATIENT
  Age: 8 Month
  Sex: Female
  Weight: 5.44 kg

DRUGS (20)
  1. SILDENAFIL. [Concomitant]
     Active Substance: SILDENAFIL
     Dosage: 10 MG, Q8HRS
     Dates: start: 20200127
  2. CHLORTHIAZIDE [Concomitant]
     Active Substance: CHLOROTHIAZIDE
     Dosage: 10 MG/KG, Q6HRS
  3. TRACLEER [Suspect]
     Active Substance: BOSENTAN
     Indication: PULMONARY ARTERIAL HYPERTENSION
     Dosage: 16.25 MG, BID
     Route: 048
     Dates: start: 20200317, end: 20200422
  4. TRACLEER [Suspect]
     Active Substance: BOSENTAN
     Dosage: 16 MG, BID
     Route: 048
  5. REMODULIN [Concomitant]
     Active Substance: TREPROSTINIL
  6. MIDAZOLAM. [Concomitant]
     Active Substance: MIDAZOLAM
  7. TRACLEER [Suspect]
     Active Substance: BOSENTAN
     Dosage: 16.25 MG, BID
     Route: 048
     Dates: start: 20200426, end: 20200712
  8. LEVALBUTEROL HCL [Concomitant]
     Active Substance: LEVALBUTEROL HYDROCHLORIDE
     Dosage: 1.25 MG, Q6HRS
     Dates: start: 20200418
  9. EPINEPHRINE. [Concomitant]
     Active Substance: EPINEPHRINE
  10. MORPHINE [Concomitant]
     Active Substance: MORPHINE
  11. SILDENAFIL. [Concomitant]
     Active Substance: SILDENAFIL
     Dosage: 1.3 MG/KG, TID
  12. FUROSEMIDE. [Concomitant]
     Active Substance: FUROSEMIDE
     Dosage: 6 MG, Q6HRS
     Dates: start: 20200603
  13. DOPAMINE [Concomitant]
     Active Substance: DOPAMINE HYDROCHLORIDE
  14. TRACLEER [Suspect]
     Active Substance: BOSENTAN
     Dosage: 32 MG, BID
     Route: 048
  15. VANCOMYCIN [Concomitant]
     Active Substance: VANCOMYCIN
     Dosage: 10 MG/KG, Q6HRS
  16. DEXAMETHASONE. [Concomitant]
     Active Substance: DEXAMETHASONE
     Dosage: 0.55 MG, Q12HRS
     Dates: start: 20200709, end: 20200712
  17. BUDESONIDE. [Concomitant]
     Active Substance: BUDESONIDE
     Dosage: 0.25 MG, BID
     Dates: start: 20200415
  18. CEFTRIAXONE. [Concomitant]
     Active Substance: CEFTRIAXONE
     Dosage: 50 MG/KG, QD
  19. CHLORTHIAZIDE [Concomitant]
     Active Substance: CHLOROTHIAZIDE
     Dosage: 34 MG, Q6HRS
     Dates: start: 20200710
  20. FUROSEMIDE. [Concomitant]
     Active Substance: FUROSEMIDE
     Dosage: 1 MG/KG, Q6HRS

REACTIONS (6)
  - Disease progression [Fatal]
  - Aspartate aminotransferase increased [Recovered/Resolved]
  - Alanine aminotransferase increased [Recovered/Resolved]
  - Pulmonary hypertension [Fatal]
  - Hepatic enzyme increased [Recovered/Resolved]
  - Oxygen saturation decreased [Fatal]

NARRATIVE: CASE EVENT DATE: 20200422
